FAERS Safety Report 8331686-7 (Version None)
Quarter: 2012Q2

REPORT INFORMATION
  Report Type: 
  Country: None (occurrence: None)
  Receive Date: 20120502
  Receipt Date: 20110510
  Transmission Date: 20120825
  Serious: No
  Sender: FDA-Public Use
  Company Number: US-ASTRAZENECA-2011SE27430

PATIENT

DRUGS (7)
  1. BELLADONNA ALKALOIDS [Concomitant]
  2. FLOASTER [Concomitant]
  3. ENTOCORT EC [Suspect]
     Indication: COLITIS MICROSCOPIC
     Route: 048
  4. BENADRYL [Concomitant]
  5. ATENOLOL [Concomitant]
  6. LOTREL [Concomitant]
  7. SYNTHROID [Concomitant]

REACTIONS (3)
  - BLADDER DISORDER [None]
  - OFF LABEL USE [None]
  - LIP SWELLING [None]
